FAERS Safety Report 4799765-9 (Version None)
Quarter: 2005Q2

REPORT INFORMATION
  Report Type: 
  Country: None (occurrence: None)
  Receive Date: 20050601
  Receipt Date: 20050601
  Transmission Date: 20051028
  Serious: Yes (Hospitalization)
  Sender: FDA-Public Use
  Company Number: None

PATIENT
  Sex: Male
  Weight: 97.5234 kg

DRUGS (3)
  1. TARCEVA [Suspect]
     Indication: NEOPLASM MALIGNANT
     Dosage: 150MG  PO  QD (THERAPY DATES: PRIOR TO ADMISSION)
     Route: 048
  2. DURAGESIC-100 [Concomitant]
  3. LOVENOX [Concomitant]

REACTIONS (2)
  - DEHYDRATION [None]
  - NAUSEA [None]
